FAERS Safety Report 7605210-8 (Version None)
Quarter: 2011Q3

REPORT INFORMATION
  Report Type: 
  Country: None (occurrence: None)
  Receive Date: 20110713
  Receipt Date: 20110710
  Transmission Date: 20111222
  Serious: Yes (Hospitalization)
  Sender: FDA-Public Use
  Company Number: IL-AMGEN-ISRSP2011030597

PATIENT
  Age: 64 Year
  Sex: Female
  Weight: 70 kg

DRUGS (8)
  1. MOXIPEN [Concomitant]
  2. NPLATE [Suspect]
     Indication: IDIOPATHIC THROMBOCYTOPENIC PURPURA
     Dosage: 690 A?G, UNK
     Route: 058
     Dates: start: 20110502, end: 20110531
  3. COLCHICINE [Concomitant]
     Dosage: UNK
     Dates: end: 20110520
  4. NPLATE [Suspect]
  5. PREDNISONE [Concomitant]
  6. TINIDAZOLE [Concomitant]
  7. LOSEC                              /00661201/ [Concomitant]
  8. LEVOFLOXACIN [Concomitant]

REACTIONS (5)
  - THROMBOCYTOSIS [None]
  - EPISTAXIS [None]
  - HEADACHE [None]
  - DIZZINESS [None]
  - PURPURA [None]
